FAERS Safety Report 15947041 (Version 1)
Quarter: 2019Q1

REPORT INFORMATION
  Report Type: Spontaneous
  Country: GB (occurrence: GB)
  Receive Date: 20190211
  Receipt Date: 20190211
  Transmission Date: 20190417
  Serious: Yes (Disabling, Other)
  Sender: FDA-Public Use
  Company Number: GB-MYLANLABS-2019M1011594

PATIENT
  Age: 61 Year
  Sex: Female
  Weight: 56.24 kg

DRUGS (2)
  1. ALENDRONATE [Suspect]
     Active Substance: ALENDRONATE SODIUM
     Indication: OSTEOPENIA
     Dosage: 70 MILLIGRAM
     Route: 048
     Dates: start: 20180714, end: 20180714
  2. LANSOPRAZOLE. [Concomitant]
     Active Substance: LANSOPRAZOLE
     Dosage: 15 MILLIGRAM

REACTIONS (7)
  - Arthralgia [Recovering/Resolving]
  - Malaise [Unknown]
  - Eye pain [Unknown]
  - Fatigue [Unknown]
  - Muscular weakness [Unknown]
  - Headache [Unknown]
  - Myalgia [Recovering/Resolving]

NARRATIVE: CASE EVENT DATE: 20180715
